FAERS Safety Report 8860889 (Version 4)
Quarter: 2013Q1

REPORT INFORMATION
  Report Type: Spontaneous
  Country: US (occurrence: US)
  Receive Date: 20121026
  Receipt Date: 20130118
  Transmission Date: 20140127
  Serious: Yes (Other)
  Sender: FDA-Public Use
  Company Number: US-AMGEN-USASP2012064767

PATIENT
  Age: 58 Year
  Sex: Male
  Weight: 118 kg

DRUGS (25)
  1. EPOGEN [Suspect]
     Indication: NEPHROGENIC ANAEMIA
     Dosage: 14300 UNIT, 3 TIMES/WK
     Route: 058
     Dates: start: 20111223
  2. SUPPOSITOIRES A LA GLYCERINE [Concomitant]
     Dosage: UNK
     Route: 054
  3. ALLOPURINOL [Concomitant]
     Dosage: 150 MG, QD
     Route: 048
     Dates: start: 20120107
  4. NORVASC [Concomitant]
     Indication: HYPERTENSION
     Dosage: 5 MG, QD
     Route: 048
     Dates: start: 20120107
  5. NORVASC [Concomitant]
     Dosage: 10 MG, UNK
     Route: 048
     Dates: start: 20120719
  6. ASPIRIN (E.C.) [Concomitant]
     Indication: HYPERTENSION
     Dosage: 81 MG, QD
     Route: 048
     Dates: start: 20120107
  7. COLACE [Concomitant]
     Dosage: 100 MG, BID PRN
     Route: 048
     Dates: start: 20120107
  8. FISH OIL CONCENTRATE [Concomitant]
     Dosage: 1000 MG, BID
     Route: 048
     Dates: start: 20120107
  9. GLIMEPIRIDE [Concomitant]
     Dosage: 4 MG, QD
     Route: 048
     Dates: start: 20120107
  10. JANUVIA [Concomitant]
     Dosage: 50 MG, 1 PO AS DIRECTED
     Route: 048
     Dates: start: 20111214
  11. LANTUS [Concomitant]
     Dosage: 25 UNIT AS DIRECTED
     Route: 058
     Dates: start: 20110907
  12. LASIX                              /00032601/ [Concomitant]
     Dosage: 80 MG, QD
     Route: 048
     Dates: start: 20111110, end: 20120809
  13. NIASPAN ER [Concomitant]
     Dosage: 1000 MG, SUSTAINED RELEASE 24 HR
     Route: 048
     Dates: start: 20120107
  14. NORCO [Concomitant]
     Dosage: 7.5- 325 MG, Q4H PRN
     Route: 048
     Dates: start: 20120107
  15. RENAGEL                            /01459902/ [Concomitant]
     Dosage: 800 MG, TID
     Route: 048
  16. FOLIC ACID W/VITAMIN B NOS/VITAMIN C [Concomitant]
     Dosage: 1 MG, QD
     Route: 048
  17. VYTORIN [Concomitant]
     Dosage: 10/40 MG, DAILY
     Route: 048
     Dates: start: 20120107
  18. ZOLOFT [Concomitant]
     Dosage: 100 MG, QD
     Route: 048
     Dates: start: 20120107
  19. VENOFER [Concomitant]
     Dosage: 50 MG, QWK
     Dates: start: 20111122
  20. TUMS                               /07357001/ [Concomitant]
     Dosage: 500 MG, QWK
     Route: 048
     Dates: start: 20120531
  21. RENVELA [Concomitant]
     Dosage: 3200 MG, WITH EACH MEAL
     Route: 048
     Dates: start: 20120531, end: 20120719
  22. RENVELA [Concomitant]
     Dosage: 800 MG, QID
     Route: 048
     Dates: start: 20120719
  23. VITAMIN D3 [Concomitant]
     Dosage: 2000 IU, QD
     Route: 048
     Dates: start: 20120812
  24. HECTOROL [Concomitant]
     Dosage: 2.0 MCG, 3 TIMES/WK
     Route: 042
     Dates: start: 20120319
  25. HEPARIN [Concomitant]
     Dosage: 1000 UNIT, UNK

REACTIONS (4)
  - Marrow hyperplasia [Unknown]
  - Hyperparathyroidism secondary [Unknown]
  - Renal impairment [Unknown]
  - Drug ineffective [Not Recovered/Not Resolved]
